FAERS Safety Report 17905529 (Version 1)
Quarter: 2020Q2

REPORT INFORMATION
  Report Type: Report from Study
  Country: US (occurrence: US)
  Receive Date: 20200617
  Receipt Date: 20200617
  Transmission Date: 20200714
  Serious: Yes (Hospitalization, Other)
  Sender: FDA-Public Use
  Company Number: US-ASTELLAS-2020US019271

PATIENT
  Age: 83 Year
  Sex: Male

DRUGS (1)
  1. MIRABEGRON [Suspect]
     Active Substance: MIRABEGRON
     Indication: PRODUCT USED FOR UNKNOWN INDICATION
     Route: 048
     Dates: start: 201910

REACTIONS (7)
  - Blood iron decreased [Unknown]
  - Abdominal discomfort [Unknown]
  - Volume blood decreased [Unknown]
  - Blood glucose increased [Unknown]
  - Dizziness [Unknown]
  - Weight decreased [Unknown]
  - Faecal vomiting [Unknown]

NARRATIVE: CASE EVENT DATE: 202005
